FAERS Safety Report 4632814-7 (Version None)
Quarter: 2005Q2

REPORT INFORMATION
  Report Type: 
  Country: None (occurrence: None)
  Receive Date: 20050412
  Receipt Date: 20050405
  Transmission Date: 20051028
  Serious: Yes (Hospitalization)
  Sender: FDA-Public Use
  Company Number: 200511236FR

PATIENT
  Age: 53 Year
  Sex: Male
  Weight: 73 kg

DRUGS (5)
  1. LASILIX [Suspect]
     Route: 048
     Dates: end: 20050316
  2. TRIATEC [Suspect]
     Route: 048
  3. LEVOTHYROX [Suspect]
     Route: 048
  4. TAHOR [Suspect]
     Route: 048
     Dates: end: 20050316
  5. HYZAAR [Suspect]
     Route: 048

REACTIONS (2)
  - ACNE [None]
  - PRURITUS [None]
